FAERS Safety Report 6130782-2 (Version None)
Quarter: 2009Q1

REPORT INFORMATION
  Report Type: 
  Country: None (occurrence: None)
  Receive Date: 20090325
  Receipt Date: 20090302
  Transmission Date: 20090719
  Serious: Yes (Disabling)
  Sender: FDA-Public Use
  Company Number: TR-BAYER-200913132GPV

PATIENT
  Age: 44 Year
  Sex: Female
  Weight: 70 kg

DRUGS (1)
  1. MAGNEVIST [Suspect]
     Indication: NUCLEAR MAGNETIC RESONANCE IMAGING
     Route: 042
     Dates: start: 20080430, end: 20080430

REACTIONS (4)
  - EXTRAVASATION [None]
  - LIVIDITY [None]
  - MUSCULAR WEAKNESS [None]
  - OEDEMA PERIPHERAL [None]
